FAERS Safety Report 6705058-2 (Version None)
Quarter: 2010Q2

REPORT INFORMATION
  Report Type: 
  Country: None (occurrence: None)
  Receive Date: 20100430
  Receipt Date: 20100426
  Transmission Date: 20101027
  Serious: Yes (Hospitalization)
  Sender: FDA-Public Use
  Company Number: B0650417A

PATIENT
  Sex: Male

DRUGS (5)
  1. ARTIST [Suspect]
     Indication: HYPERTENSION
     Dosage: 2.5MG PER DAY
     Route: 048
     Dates: start: 20100202, end: 20100330
  2. BEPRICOR [Suspect]
     Indication: DRUG USE FOR UNKNOWN INDICATION
     Dosage: 100MG PER DAY
     Route: 048
     Dates: start: 20100202, end: 20100330
  3. AMLODIN [Concomitant]
  4. CANDESARTAN CILEXETIL [Concomitant]
  5. WARFARIN SODIUM [Concomitant]
     Dates: start: 20100119, end: 20100330

REACTIONS (1)
  - TORSADE DE POINTES [None]
